FAERS Safety Report 8019916-2 (Version None)
Quarter: 2012Q1

REPORT INFORMATION
  Report Type: 
  Country: None (occurrence: None)
  Receive Date: 20120103
  Receipt Date: 20111230
  Transmission Date: 20120608
  Serious: Yes (Death, Life-Threatening, Hospitalization)
  Sender: FDA-Public Use
  Company Number: NL-GENZYME-CLOF-1001789

PATIENT
  Sex: Female
  Weight: 66 kg

DRUGS (5)
  1. EVOLTRA [Suspect]
     Indication: ACUTE MYELOID LEUKAEMIA
     Dosage: 18 MG, UNK
     Route: 042
     Dates: start: 20110811, end: 20110815
  2. IMURAN [Concomitant]
     Indication: CROHN'S DISEASE
     Dosage: 100 MG, UNK
     Route: 048
     Dates: start: 20010101, end: 20110804
  3. ANTIBIOTICS [Concomitant]
     Indication: CLOSTRIDIAL INFECTION
     Dosage: UNK
     Route: 065
  4. CYTARABINE [Suspect]
     Indication: ACUTE MYELOID LEUKAEMIA
     Dosage: 360 MG, UNK
     Route: 042
     Dates: start: 20110811, end: 20110817
  5. IDARUBICIN HCL [Suspect]
     Indication: ACUTE MYELOID LEUKAEMIA
     Dosage: 22 MG, UNK
     Route: 042
     Dates: start: 20110811, end: 20110813

REACTIONS (2)
  - INTESTINAL HAEMORRHAGE [None]
  - INTESTINAL ISCHAEMIA [None]
